FAERS Safety Report 17453177 (Version 2)
Quarter: 2020Q1

REPORT INFORMATION
  Report Type: Spontaneous
  Country: US (occurrence: US)
  Receive Date: 20200224
  Receipt Date: 20200330
  Transmission Date: 20200409
  Serious: Yes (Death, Other)
  Sender: FDA-Public Use
  Company Number: US-TASMAN PHARMA, INC.-2020TSM00063

PATIENT
  Sex: Male
  Weight: 126.98 kg

DRUGS (11)
  1. FUROSEMIDE. [Concomitant]
     Active Substance: FUROSEMIDE
     Dosage: 40 MG, 1X/DAY
  2. OMEPRAZOLE. [Concomitant]
     Active Substance: OMEPRAZOLE
     Dosage: 20 MG, 2X/DAY
  3. COMBIVENT [Concomitant]
     Active Substance: ALBUTEROL SULFATE\IPRATROPIUM BROMIDE
     Dosage: UNK, 4X/DAY
  4. CLOTRIMAZOLE 1% [Concomitant]
     Dosage: UNK, 1X/DAY TO THE FEET
     Route: 061
  5. ALPRAZOLAM ER [Concomitant]
     Active Substance: ALPRAZOLAM
     Dosage: 3 MG, 1X/DAY
  6. ALCOHOL. [Suspect]
     Active Substance: ALCOHOL
     Dosage: UNK
  7. METFORMIN [Concomitant]
     Active Substance: METFORMIN HYDROCHLORIDE
     Dosage: 2000 MG, 1X/DAY
  8. ATENOLOL. [Concomitant]
     Active Substance: ATENOLOL
     Dosage: 50 MG, 1X/DAY
  9. FENOFIBRATE. [Concomitant]
     Active Substance: FENOFIBRATE
     Dosage: 200 MG, 1X/DAY
  10. CLOZAPINE. [Suspect]
     Active Substance: CLOZAPINE
     Indication: SCHIZOPHRENIA
     Dosage: 175 MG, 1X/DAY IN THE EVENING
     Route: 048
  11. GLIPIZIDE. [Concomitant]
     Active Substance: GLIPIZIDE
     Dosage: 5 MG, 2X/DAY

REACTIONS (16)
  - Pulmonary oedema [Fatal]
  - Cardiometabolic syndrome [Unknown]
  - Bronchial hyperreactivity [Unknown]
  - Tachycardia [Recovered/Resolved]
  - Lymphoedema [Unknown]
  - Tinea pedis [Unknown]
  - Chronic obstructive pulmonary disease [Unknown]
  - Cellulitis [Unknown]
  - Obesity [Fatal]
  - Cardiac failure congestive [Fatal]
  - Alcohol abuse [Not Recovered/Not Resolved]
  - Type 2 diabetes mellitus [Unknown]
  - Gastrooesophageal reflux disease [Unknown]
  - Dyslipidaemia [Unknown]
  - Gout [Unknown]
  - Hypertension [Unknown]
